FAERS Safety Report 5815216-7 (Version None)
Quarter: 2008Q3

REPORT INFORMATION
  Report Type: 
  Country: None (occurrence: None)
  Receive Date: 20080718
  Receipt Date: 20080704
  Transmission Date: 20090109
  Serious: Yes (Death, Hospitalization, Other)
  Sender: FDA-Public Use
  Company Number: KR-GENENTECH-264364

PATIENT
  Sex: Female

DRUGS (4)
  1. RITUXIMAB [Suspect]
     Indication: LYMPHOMA
     Dosage: 500 MG, 1/WEEK
     Dates: start: 20080521
  2. ITRACONAZOL [Concomitant]
     Indication: DRUG USE FOR UNKNOWN INDICATION
     Dosage: 200 MG, QD
  3. MAXIPIME [Concomitant]
     Indication: DRUG USE FOR UNKNOWN INDICATION
     Dosage: 4 G, QD
  4. ISEPACIN [Concomitant]
     Indication: DRUG USE FOR UNKNOWN INDICATION
     Dosage: 400 MG, QD

REACTIONS (3)
  - MULTI-ORGAN FAILURE [None]
  - PNEUMONIA [None]
  - SEPSIS [None]
